FAERS Safety Report 6825622-X (Version None)
Quarter: 2010Q3

REPORT INFORMATION
  Report Type: 
  Country: None (occurrence: None)
  Receive Date: 20100708
  Receipt Date: 20070406
  Transmission Date: 20110219
  Serious: No
  Sender: FDA-Public Use
  Company Number: US-PFIZER INC-2006143295

PATIENT
  Sex: Female

DRUGS (8)
  1. CHANTIX [Suspect]
     Route: 048
     Dates: start: 20060810
  2. NEURONTIN [Concomitant]
     Route: 048
  3. LOTREL [Concomitant]
     Dosage: 5/20 MILLIGRAMS
     Route: 048
  4. EFFEXOR XR [Concomitant]
     Route: 048
  5. GLUCOPHAGE [Concomitant]
     Route: 048
  6. AMARYL [Concomitant]
     Route: 048
  7. MOBIC [Concomitant]
     Route: 048
  8. XANAX [Concomitant]
     Dosage: 1 TABLET 1-2 TIMES A WEEK
     Route: 048

REACTIONS (2)
  - DRUG SCREEN POSITIVE [None]
  - HYPERHIDROSIS [None]
